FAERS Safety Report 9403289 (Version 1)
Quarter: 2013Q3

REPORT INFORMATION
  Report Type: Spontaneous
  Country: FR (occurrence: FR)
  Receive Date: 20130716
  Receipt Date: 20130716
  Transmission Date: 20140515
  Serious: Yes (Hospitalization, Other)
  Sender: FDA-Public Use
  Company Number: FR-PFIZER INC-2013203705

PATIENT
  Age: 72 Year
  Sex: Female

DRUGS (4)
  1. TAHOR [Suspect]
     Dosage: UNK
     Dates: end: 20120608
  2. BI-PROFENID [Suspect]
     Dosage: UNK
     Dates: end: 20120608
  3. FOSAVANCE [Concomitant]
     Dosage: UNK
     Dates: end: 20120608
  4. IDEOS [Concomitant]
     Dosage: UNK
     Dates: end: 20120608

REACTIONS (3)
  - Rash maculo-papular [Recovered/Resolved]
  - Pruritus [Recovered/Resolved]
  - Oedema peripheral [Recovered/Resolved]
